FAERS Safety Report 7583574-1 (Version None)
Quarter: 2011Q2

REPORT INFORMATION
  Report Type: 
  Country: None (occurrence: None)
  Receive Date: 20110630
  Receipt Date: 20110609
  Transmission Date: 20111010
  Serious: Yes (Death, Hospitalization)
  Sender: FDA-Public Use
  Company Number: A0806062A

PATIENT
  Age: 64 Year
  Sex: Male
  Weight: 136.4 kg

DRUGS (16)
  1. WARFARIN SODIUM [Concomitant]
  2. LASIX [Concomitant]
  3. PREDNISONE [Concomitant]
  4. AVANDIA [Suspect]
     Indication: DIABETES MELLITUS
     Dosage: 8MG PER DAY
     Route: 048
     Dates: start: 20020101, end: 20070724
  5. LIPITOR [Concomitant]
  6. METFORMIN HCL [Concomitant]
  7. ALBUTEROL SULFATE AUTOHALER [Concomitant]
  8. KLOR-CON [Concomitant]
  9. TOPROL-XL [Concomitant]
  10. FUROSEMIDE [Concomitant]
  11. PHENTERMINE [Concomitant]
  12. LEVOTHYROXINE SODIUM [Concomitant]
  13. QUINAPRIL HCL [Concomitant]
  14. AVELOX [Concomitant]
  15. CHANTIX [Concomitant]
  16. GLIMEPIRIDE [Concomitant]

REACTIONS (2)
  - CARDIO-RESPIRATORY ARREST [None]
  - MYOCARDIAL INFARCTION [None]
